FAERS Safety Report 6011308-0 (Version None)
Quarter: 2008Q4

REPORT INFORMATION
  Report Type: 
  Country: None (occurrence: None)
  Receive Date: 20081218
  Receipt Date: 20081208
  Transmission Date: 20090506
  Serious: No
  Sender: FDA-Public Use
  Company Number: JP-BIOGENIDEC-2008BI006991

PATIENT
  Age: 47 Year
  Sex: Female

DRUGS (6)
  1. AVONEX [Suspect]
     Indication: RELAPSING-REMITTING MULTIPLE SCLEROSIS
     Route: 030
     Dates: start: 20070815
  2. INTERFERON BETA-1B [Concomitant]
     Indication: DRUG USE FOR UNKNOWN INDICATION
  3. TERNELIN [Concomitant]
     Dates: start: 20070815
  4. CYANOCOBALAMIN [Concomitant]
     Dates: start: 20070815
  5. LENDORMIN [Concomitant]
     Dates: start: 20070815
  6. LOXONIN [Concomitant]
     Dates: start: 20070815

REACTIONS (1)
  - AMENORRHOEA [None]
